FAERS Safety Report 16107403 (Version 1)
Quarter: 2019Q1

REPORT INFORMATION
  Report Type: Spontaneous
  Country: US (occurrence: US)
  Receive Date: 20190322
  Receipt Date: 20190322
  Transmission Date: 20190418
  Serious: No
  Sender: FDA-Public Use
  Company Number: US-BAYER-2019-056057

PATIENT
  Age: 41 Year
  Sex: Male
  Weight: 127 kg

DRUGS (2)
  1. COLOMYCIN [COLISTIN SULFATE] [Concomitant]
  2. ALEVE [Suspect]
     Active Substance: NAPROXEN SODIUM
     Indication: PAIN
     Dosage: 2 DF (2 TABLETS EVERY 10 HOURS)
     Route: 048

REACTIONS (3)
  - Incorrect dosage administered [Unknown]
  - Drug ineffective [Unknown]
  - Therapeutic response unexpected [Unknown]
